FAERS Safety Report 23810994 (Version 2)
Quarter: 2024Q3

REPORT INFORMATION
  Report Type: Spontaneous
  Country: US (occurrence: US)
  Receive Date: 20240502
  Receipt Date: 20240711
  Transmission Date: 20241017
  Serious: No
  Sender: INCYTE
  Company Number: US-INCYTE CORPORATION-2024IN004508

PATIENT

DRUGS (1)
  1. JAKAFI [Suspect]
     Active Substance: RUXOLITINIB
     Indication: Immune thrombocytopenia
     Dosage: 10 MILLIGRAM, BID
     Route: 048
     Dates: start: 202312

REACTIONS (4)
  - Flatulence [Unknown]
  - Abdominal distension [Unknown]
  - Vertigo [Unknown]
  - Off label use [Unknown]

NARRATIVE: CASE EVENT DATE: 20231201
